FAERS Safety Report 5224171-2 (Version None)
Quarter: 2007Q1

REPORT INFORMATION
  Report Type: 
  Country: None (occurrence: None)
  Receive Date: 20070126
  Receipt Date: 20070110
  Transmission Date: 20070707
  Serious: Yes (Death, Hospitalization, Congenital Anomaly)
  Sender: FDA-Public Use
  Company Number: DSA_29240_2007

PATIENT
  Sex: Female
  Weight: 1.325 kg

DRUGS (4)
  1. ENALAPRIL MALEATE [Suspect]
     Dosage: DF TRAN-P
     Route: 064
  2. FENOFIBRATE [Concomitant]
  3. FUROSEMIDE [Concomitant]
  4. ZOPICLONE [Concomitant]

REACTIONS (20)
  - CAESAREAN SECTION [None]
  - CONGENITAL ANOMALY [None]
  - CONGENITAL CENTRAL NERVOUS SYSTEM ANOMALY [None]
  - DRUG EXPOSURE DURING PREGNANCY [None]
  - EAR MALFORMATION [None]
  - ELECTROENCEPHALOGRAM ABNORMAL [None]
  - FOETAL HEART RATE DISORDER [None]
  - HYPERKALAEMIA [None]
  - METABOLIC ACIDOSIS [None]
  - MICROCEPHALY [None]
  - NECK DEFORMITY [None]
  - NEONATAL ANURIA [None]
  - NEONATAL HYPOTENSION [None]
  - NEONATAL RESPIRATORY DISTRESS SYNDROME [None]
  - PREMATURE BABY [None]
  - PULMONARY HYPOPLASIA [None]
  - RENAL FAILURE NEONATAL [None]
  - SKULL MALFORMATION [None]
  - SMALL FOR DATES BABY [None]
  - ULTRASOUND KIDNEY ABNORMAL [None]
